FAERS Safety Report 5090073-8 (Version None)
Quarter: 2006Q3

REPORT INFORMATION
  Report Type: 
  Country: None (occurrence: None)
  Receive Date: 20060828
  Receipt Date: 20060720
  Transmission Date: 20061208
  Serious: Yes (Other)
  Sender: FDA-Public Use
  Company Number: 2006AP03359

PATIENT
  Age: 18773 Day
  Sex: Female

DRUGS (2)
  1. MARCAINE 0.5% ADRENALINE [Suspect]
     Indication: INFILTRATION ANAESTHESIA
     Dosage: 1 X 20 ML ADMINISTERED
     Route: 058
     Dates: start: 20060711, end: 20060711
  2. MARCAINE 0.5% ADRENALINE [Suspect]
     Indication: SKIN NEOPLASM EXCISION
     Dosage: 1 X 20 ML ADMINISTERED
     Route: 058
     Dates: start: 20060711, end: 20060711

REACTIONS (1)
  - SKIN REACTION [None]
